FAERS Safety Report 9786837 (Version 2)
Quarter: 2014Q1

REPORT INFORMATION
  Report Type: Spontaneous
  Country: US (occurrence: US)
  Receive Date: 20131227
  Receipt Date: 20140320
  Transmission Date: 20141002
  Serious: No
  Sender: FDA-Public Use
  Company Number: US-B.I. PHARMACEUTICALS,INC./RIDGEFIELD-2013-BI-42543BP

PATIENT
  Age: 42 Year
  Sex: Male
  Weight: 156 kg

DRUGS (2)
  1. ZANTAC COOL MINT (TABLETS) [Suspect]
     Indication: DYSPEPSIA
     Dosage: 300 MG
     Route: 048
  2. ZANTAC COOL MINT (TABLETS) [Suspect]
     Indication: DYSPEPSIA

REACTIONS (4)
  - Drug ineffective [Recovered/Resolved]
  - Product quality issue [Unknown]
  - Product quality issue [Unknown]
  - Product quality issue [Unknown]
